FAERS Safety Report 5018251-4 (Version None)
Quarter: 2006Q2

REPORT INFORMATION
  Report Type: 
  Country: None (occurrence: None)
  Receive Date: 20060530
  Receipt Date: 20060522
  Transmission Date: 20061013
  Serious: Yes (Hospitalization)
  Sender: FDA-Public Use
  Company Number: 2005-06-1003

PATIENT
  Age: 45 Year
  Sex: Male

DRUGS (7)
  1. TEMODAL [Suspect]
     Indication: GLIOBLASTOMA
     Dosage: 150 MG/M^2; ORAL
     Route: 048
     Dates: start: 20050425, end: 20050501
  2. TEMODAL [Suspect]
     Indication: NEOPLASM RECURRENCE
     Dosage: 150 MG/M^2; ORAL
     Route: 048
     Dates: start: 20050425, end: 20050501
  3. RADIATION THERAPY FOR RELAPSE OF GLIOBLASTOMA [Concomitant]
  4. ACETYLSALICYLIC ACID SRT [Concomitant]
  5. DELIX PLUS (RAMIPRIL AND HYDROCHLOROTHIAZIDE) [Concomitant]
  6. AMARYL [Concomitant]
  7. NEXIUM [Concomitant]

REACTIONS (7)
  - APHASIA [None]
  - CNS VENTRICULITIS [None]
  - ENCEPHALITIS [None]
  - GLIOBLASTOMA [None]
  - MALIGNANT NEOPLASM PROGRESSION [None]
  - NAUSEA [None]
  - PARTIAL SEIZURES [None]
